FAERS Safety Report 5198949-8 (Version None)
Quarter: 2006Q4

REPORT INFORMATION
  Report Type: 
  Country: None (occurrence: None)
  Receive Date: 20060920
  Receipt Date: 20060215
  Transmission Date: 20070319
  Serious: Yes (Other)
  Sender: FDA-Public Use
  Company Number: HQWYE822415FEB06

PATIENT
  Age: 75 Year
  Sex: Male

DRUGS (20)
  1. CORDARONE [Suspect]
     Indication: ATRIAL FLUTTER
     Dosage: 150 MG ONCE, INTRAVENOUS; SEE IMAGE
     Route: 042
     Dates: start: 20060101, end: 20060101
  2. CORDARONE [Suspect]
     Indication: ATRIAL FLUTTER
     Dosage: 150 MG ONCE, INTRAVENOUS; SEE IMAGE
     Route: 042
     Dates: start: 20060102, end: 20060102
  3. CORDARONE [Suspect]
     Indication: ATRIAL FLUTTER
     Dosage: 150 MG ONCE, INTRAVENOUS; SEE IMAGE
     Route: 042
     Dates: start: 20060101
  4. PROTONIX [Concomitant]
  5. DIPHENOXYLATE/ATROPINE (ATROPINE/DIPHENOXYLATE) [Concomitant]
  6. BREVITAL SODIUM [Concomitant]
  7. DALMANE [Concomitant]
  8. DIPHENHYDRAMINE HCL [Concomitant]
  9. SODIUM CHLORIDE 0.9% [Concomitant]
  10. POTASSIUM CHLORIDE [Concomitant]
  11. PHENERGAN (PROMETHAZINE HYDROCHLORIDE) [Concomitant]
  12. TYLENOLOL (PARACETAMOL) [Concomitant]
  13. COUMADIN [Concomitant]
  14. DEMEROL [Concomitant]
  15. K-DUR 10 [Concomitant]
  16. MAGNESIUM SULFATE [Concomitant]
  17. HYDROCORTISONE ACETATE (HYDROCORTISONE ACETATE) [Concomitant]
  18. LOVENOX [Concomitant]
  19. ACETAMINOPHEN W/ PROPOXYPHENE HCL [Concomitant]
  20. ZOFRAN [Concomitant]

REACTIONS (3)
  - BLOOD PRESSURE DECREASED [None]
  - FLUSHING [None]
  - LOSS OF CONSCIOUSNESS [None]
